FAERS Safety Report 8349488-4 (Version None)
Quarter: 2012Q2

REPORT INFORMATION
  Report Type: 
  Country: None (occurrence: None)
  Receive Date: 20120510
  Receipt Date: 20120501
  Transmission Date: 20120825
  Serious: Yes (Other)
  Sender: FDA-Public Use
  Company Number: US-GENZYME-POMP-1002071

PATIENT
  Sex: Male
  Weight: 31.4 kg

DRUGS (3)
  1. LUMIZYME [Suspect]
     Indication: GLYCOGEN STORAGE DISEASE TYPE II
     Dosage: 600 MG, Q2W
     Route: 042
     Dates: start: 20100330, end: 20120202
  2. MOTRIN [Concomitant]
     Indication: PREMEDICATION
  3. BENADRYL [Concomitant]
     Indication: PREMEDICATION

REACTIONS (6)
  - C-REACTIVE PROTEIN INCREASED [None]
  - ANAEMIA [None]
  - FALL [None]
  - RED BLOOD CELL SEDIMENTATION RATE INCREASED [None]
  - CHRONIC RECURRENT MULTIFOCAL OSTEOMYELITIS [None]
  - SKIN LESION [None]
